FAERS Safety Report 9665659 (Version 4)
Quarter: 2016Q1

REPORT INFORMATION
  Report Type: Spontaneous
  Country: FR (occurrence: FR)
  Receive Date: 20131104
  Receipt Date: 20160325
  Transmission Date: 20160526
  Serious: Yes (Other)
  Sender: FDA-Public Use
  Company Number: PHHY2013FR034527

PATIENT
  Age: 43 Year
  Sex: Female

DRUGS (3)
  1. SPECIAFOLDINE [Suspect]
     Active Substance: FOLIC ACID
     Indication: HAEMOLYSIS
     Dosage: 5 MG, (10 DAYS PER MONTH)
     Route: 048
     Dates: start: 1980
  2. EXJADE [Suspect]
     Active Substance: DEFERASIROX
     Dosage: 1000 MG, QD
     Route: 048
     Dates: start: 20100201, end: 20100728
  3. EXJADE [Suspect]
     Active Substance: DEFERASIROX
     Indication: HAEMOLYTIC ANAEMIA
     Dosage: 625 MG, QD
     Route: 048
     Dates: start: 20070410, end: 20100131

REACTIONS (4)
  - Arthropathy [Unknown]
  - Bone marrow disorder [Unknown]
  - Joint effusion [Unknown]
  - Arthralgia [Not Recovered/Not Resolved]

NARRATIVE: CASE EVENT DATE: 201302
